FAERS Safety Report 9706094 (Version 2)
Quarter: 2013Q4

REPORT INFORMATION
  Report Type: Spontaneous
  Country: US (occurrence: US)
  Receive Date: 20131124
  Receipt Date: 20131124
  Transmission Date: 20140711
  Serious: Yes (Hospitalization)
  Sender: FDA-Public Use
  Company Number: US-SANOFI-AVENTIS-2012SA085054

PATIENT
  Age: 81 Year
  Sex: Male
  Weight: 47.2 kg

DRUGS (32)
  1. PLAVIX [Suspect]
     Indication: ACUTE CORONARY SYNDROME
     Route: 048
  2. PLAVIX [Suspect]
     Indication: ACUTE CORONARY SYNDROME
     Route: 048
     Dates: start: 20121018
  3. PLAVIX [Suspect]
     Indication: ACUTE CORONARY SYNDROME
     Route: 048
     Dates: start: 20121018, end: 20121018
  4. ASPIRIN [Suspect]
     Indication: ACUTE CORONARY SYNDROME
     Route: 048
  5. ASPIRIN [Suspect]
     Indication: ACUTE CORONARY SYNDROME
     Route: 048
     Dates: start: 20121017
  6. OTAMIXABAN [Suspect]
     Indication: ACUTE CORONARY SYNDROME
     Route: 042
     Dates: start: 20121018, end: 20121018
  7. LOVENOX [Concomitant]
     Route: 058
     Dates: start: 20121018, end: 20121018
  8. ALBUTEROL [Concomitant]
     Dates: start: 20121020, end: 20121020
  9. COREG [Concomitant]
     Dates: start: 20121018, end: 20121018
  10. COREG [Concomitant]
     Dates: start: 20121020
  11. CYMBALTA [Concomitant]
     Dates: start: 20121020
  12. PEPCID [Concomitant]
     Dates: start: 20121020, end: 20121020
  13. FOLIC ACID [Concomitant]
     Dates: start: 20121019, end: 20121020
  14. IMDUR [Concomitant]
     Dates: start: 20121020
  15. XOPENEX [Concomitant]
     Dates: start: 20121020, end: 20121023
  16. LIDODERM [Concomitant]
     Dosage: 1 PATCH? DOSE:1 UNIT(S)
     Dates: start: 20121019, end: 20121023
  17. MEGESTROL [Concomitant]
     Dates: start: 20121019, end: 20121019
  18. MIRTAZAPINE [Concomitant]
     Dates: start: 20121018, end: 20121018
  19. MIRTAZAPINE [Concomitant]
     Dates: start: 20121019
  20. MULTIVITAMINS WITH MINERALS [Concomitant]
     Dates: start: 20121020
  21. NITRO-BID [Concomitant]
     Dosage: 2 INCHS
     Dates: start: 20121018, end: 20121018
  22. PROTONIX [Concomitant]
     Dates: start: 20121020
  23. POTASSIUM PHOSPHATE MONOBASIC/SODIUM PHOSPHATE [Concomitant]
     Dates: start: 20121020, end: 20121021
  24. SENNA [Concomitant]
     Dates: start: 20121019
  25. ZOCOR [Concomitant]
     Dates: start: 20121018
  26. THIAMINE [Concomitant]
     Dates: start: 20121019, end: 20121019
  27. ALPRAZOLAM [Concomitant]
     Dates: start: 20121018, end: 20121022
  28. MORPHINE [Concomitant]
     Dates: start: 20121018, end: 20121018
  29. NITROQUICK [Concomitant]
     Dates: start: 20121018, end: 20121018
  30. POTASSIUM CHLORIDE [Concomitant]
     Dates: start: 20121023, end: 20121023
  31. VITAMIN D [Concomitant]
     Dosage: DOSE:2000 UNIT(S)
     Dates: start: 20121024
  32. VITAMIN B12 [Concomitant]
     Dates: start: 20121024

REACTIONS (1)
  - Upper gastrointestinal haemorrhage [Recovered/Resolved]
